FAERS Safety Report 5993883-5 (Version None)
Quarter: 2008Q4

REPORT INFORMATION
  Report Type: 
  Country: None (occurrence: None)
  Receive Date: 20081212
  Receipt Date: 20080924
  Transmission Date: 20090506
  Serious: No
  Sender: FDA-Public Use
  Company Number: US-ABBOTT-08P-163-0453581-00

PATIENT
  Sex: Female
  Weight: 79.45 kg

DRUGS (9)
  1. HUMIRA [Suspect]
     Indication: RHEUMATOID ARTHRITIS
     Route: 058
     Dates: start: 20071208, end: 20080426
  2. HUMIRA [Suspect]
     Indication: PSORIASIS
  3. ISOMYACIN [Concomitant]
     Indication: ANTIBIOTIC PROPHYLAXIS
     Dates: start: 20070101
  4. FISH OIL [Concomitant]
     Indication: MEDICAL DIET
     Route: 048
  5. FOLIC ACID [Concomitant]
     Indication: VITAMIN SUPPLEMENTATION
     Route: 048
  6. VITAMIN B12 NOS W/VITAMIN B6 [Concomitant]
     Indication: VITAMIN SUPPLEMENTATION
     Route: 048
  7. DESONIDE [Concomitant]
     Indication: PSORIASIS
     Dates: start: 19930101
  8. CLOBETASOL PROPIONATE [Concomitant]
     Indication: PSORIASIS
     Dates: start: 19980701
  9. HYDROXYZINE [Concomitant]
     Indication: DRUG USE FOR UNKNOWN INDICATION
     Route: 048
     Dates: start: 20080904

REACTIONS (15)
  - ALOPECIA [None]
  - COUGH [None]
  - DISCOMFORT [None]
  - EMOTIONAL DISTRESS [None]
  - FURUNCLE [None]
  - HAEMORRHAGE [None]
  - HYPERSENSITIVITY [None]
  - JOINT SWELLING [None]
  - NASAL DRYNESS [None]
  - NASAL MUCOSAL DISORDER [None]
  - NASAL ULCER [None]
  - PAIN [None]
  - POOR QUALITY SLEEP [None]
  - PSORIASIS [None]
  - SKIN DISORDER [None]
